FAERS Safety Report 25924888 (Version 1)
Quarter: 2025Q4

REPORT INFORMATION
  Report Type: Spontaneous
  Country: US (occurrence: None)
  Receive Date: 20251013
  Receipt Date: 20251013
  Transmission Date: 20260118
  Serious: Yes (unspecified)
  Sender: FDA-CTU
  Company Number: None

PATIENT
  Age: 40 Year
  Sex: Female
  Weight: 98.1 kg

DRUGS (1)
  1. ISOVUE 300 [Suspect]
     Active Substance: IOPAMIDOL
     Dosage: 100 ML   ONE TIME EVENT INTRAVENOUS?
     Route: 042
     Dates: start: 20230922

REACTIONS (3)
  - Contrast media reaction [None]
  - Sneezing [None]
  - Nausea [None]

NARRATIVE: CASE EVENT DATE: 20250930
